FAERS Safety Report 8113341-1 (Version None)
Quarter: 2012Q1

REPORT INFORMATION
  Report Type: 
  Country: None (occurrence: None)
  Receive Date: 20120203
  Receipt Date: 20120130
  Transmission Date: 20120608
  Serious: Yes (Death)
  Sender: FDA-Public Use
  Company Number: PHHY2012FR008398

PATIENT

DRUGS (2)
  1. L-DOPA [Suspect]
     Dosage: UNK UKN, UNK
  2. ENTACAPONE [Suspect]
     Dosage: 200 MG, DAY

REACTIONS (1)
  - CARDIOPULMONARY FAILURE [None]
